FAERS Safety Report 12616571 (Version 1)
Quarter: 2016Q3

REPORT INFORMATION
  Report Type: Spontaneous
  Country: US (occurrence: US)
  Receive Date: 20160802
  Receipt Date: 20160802
  Transmission Date: 20161109
  Serious: No
  Sender: FDA-Public Use
  Company Number: US-IMPAX LABORATORIES, INC-2015AMD00146

PATIENT
  Age: 61 Year
  Sex: Male
  Weight: 99.77 kg

DRUGS (7)
  1. MAGNESIUM [Concomitant]
     Active Substance: MAGNESIUM
  2. ZINC [Concomitant]
     Active Substance: ZINC\ZINC CHLORIDE
  3. FISH OIL [Concomitant]
     Active Substance: FISH OIL
  4. ALBENDAZOLE [Suspect]
     Active Substance: ALBENDAZOLE
     Indication: ENTEROBIASIS
     Dosage: 400 MG, 2X/DAY
     Dates: start: 20150626, end: 20150703
  5. AZOR [Concomitant]
     Active Substance: AMLODIPINE BESYLATE\OLMESARTAN MEDOXOMIL
  6. ALBENDAZOLE [Suspect]
     Active Substance: ALBENDAZOLE
     Indication: NEMATODIASIS
  7. MULTIVITAMIN [Concomitant]
     Active Substance: VITAMINS

REACTIONS (1)
  - Drug ineffective for unapproved indication [Not Recovered/Not Resolved]

NARRATIVE: CASE EVENT DATE: 20150626
